FAERS Safety Report 6577956-4 (Version None)
Quarter: 2010Q1

REPORT INFORMATION
  Report Type: 
  Country: None (occurrence: None)
  Receive Date: 20100211
  Receipt Date: 20100203
  Transmission Date: 20100710
  Serious: Yes (Death)
  Sender: FDA-Public Use
  Company Number: SE-BRISTOL-MYERS SQUIBB COMPANY-14629505

PATIENT
  Age: 59 Year
  Sex: Male

DRUGS (21)
  1. ERBITUX [Suspect]
     Indication: COLORECTAL CANCER METASTATIC
     Dates: start: 20090504, end: 20090504
  2. CAMPTOSAR [Suspect]
     Indication: COLORECTAL CANCER METASTATIC
     Dates: start: 20090504
  3. CORTISONE ACETATE [Concomitant]
  4. PRIMPERAN TAB [Concomitant]
     Indication: NAUSEA
     Dosage: STRENGTH 10MG TABS
     Dates: start: 20090504
  5. MOVICOL [Concomitant]
     Dosage: 13.8G POWDER TO ORAL SOLUTION
     Route: 048
     Dates: start: 20090504
  6. FURIX [Concomitant]
     Dosage: 20MG TABS
     Dates: start: 20090509
  7. SELOKEN ZOC [Concomitant]
     Dosage: SELOKEN ZOC/ASA, 100 MG DEPOT TABLET
     Dates: start: 20090504
  8. METOPROLOL TARTRATE [Concomitant]
     Dosage: METOPROLOL SANDOZ 25 MG DEPOT TABLET
     Dates: start: 20090504
  9. ENALAPRIL MALEATE [Concomitant]
     Dosage: ENALAPRIL SANDOZ 20MG TABS
     Dates: start: 20090504
  10. BETAPRED [Concomitant]
     Dosage: 0.5MG TABS 4MAY09-5MAY09:1DF 6MAY09-8MAY09:6DF(2D) 9MAY09:4DF 10MAY09:2DF
     Dates: start: 20090504, end: 20090510
  11. FRAGMIN [Concomitant]
     Dosage: HEPARIN FRACTION SODIUM SALT (12500 IU/ DOS 0.5 ML, 1 PREFILLED SYRINGE)
     Dates: start: 20090508, end: 20090508
  12. BUSCOPAN [Concomitant]
     Dosage: 20MG/ML INJ
     Dates: start: 20090510, end: 20090510
  13. LAXOBERAL [Concomitant]
     Dosage: 1 DF = 7.5 MG/ML ORAL DROP SOLUTION
     Route: 048
  14. FUROSEMIDE [Concomitant]
     Dosage: FUROSEMIDE RECIP 10MG/ML INJECTION SOLUTION 2 DF
     Dates: start: 20090511, end: 20090511
  15. VOLTAREN [Concomitant]
     Dosage: 3 ML (AS REQUIRED):08-MAY-2009  2 DF:09MAY09- O9MAY09 3 DF:LOMAY09 - LLMAY09: 11 DAY
     Dates: start: 20090508, end: 20090511
  16. OXYNORM [Concomitant]
     Dosage: 10MG CAPS HARD; 5MG RESPECTIVELY 10 MG CAPSULE, RESPECTIVELY 10 MG/ML INJECTION SOLUTION
     Dates: start: 20090510, end: 20090510
  17. HALDOL [Concomitant]
     Dosage: 5 MG/ML, INJECTION SOLUTION
  18. STESOLID [Concomitant]
     Dosage: STESOLID NOVUM 5 MG/ML INJECTION EMULSION 2 DF
     Dates: start: 20090511, end: 20090511
  19. STILNOCT [Concomitant]
     Dosage: 10MG FILM COATED TABS
  20. CEFTAZIDIME [Concomitant]
     Indication: PROPHYLAXIS
     Dosage: 2 GRAM,INJ
     Dates: start: 20090510
  21. OXYCONTIN [Concomitant]
     Dosage: 40 MG,TABLET
     Dates: start: 20090504

REACTIONS (1)
  - RHABDOMYOLYSIS [None]
